FAERS Safety Report 9674265 (Version 1)
Quarter: 2013Q4

REPORT INFORMATION
  Report Type: Spontaneous
  Country: DK (occurrence: DK)
  Receive Date: 20131107
  Receipt Date: 20131107
  Transmission Date: 20140711
  Serious: Yes (Hospitalization)
  Sender: FDA-Public Use
  Company Number: PHHY2013DK123247

PATIENT
  Age: 39 Year
  Sex: Male
  Weight: 80 kg

DRUGS (1)
  1. METHOTREXATE SANDOZ [Suspect]
     Indication: PSORIATIC ARTHROPATHY
     Dosage: 25 MG, QW
     Route: 048
     Dates: end: 20130101

REACTIONS (3)
  - Weight decreased [Recovered/Resolved]
  - Biopsy bone marrow abnormal [Recovered/Resolved]
  - Hepatic enzyme increased [Recovered/Resolved]
